FAERS Safety Report 5582993-2 (Version None)
Quarter: 2008Q1

REPORT INFORMATION
  Report Type: 
  Country: None (occurrence: None)
  Receive Date: 20080107
  Receipt Date: 20071227
  Transmission Date: 20080703
  Serious: Yes (Hospitalization)
  Sender: FDA-Public Use
  Company Number: CH-AVENTIS-200721821GDDC

PATIENT
  Age: 89 Year
  Sex: Female
  Weight: 105 kg

DRUGS (6)
  1. FLAGYL [Suspect]
     Route: 048
     Dates: start: 20070830, end: 20070904
  2. SIMVASTATIN [Suspect]
     Route: 048
     Dates: start: 20070830
  3. ROCEPHIN                           /00672201/ [Suspect]
     Route: 042
     Dates: start: 20070830, end: 20070830
  4. CLEXANE [Concomitant]
     Route: 058
     Dates: start: 20070830, end: 20070911
  5. TORSEMIDE [Concomitant]
     Route: 048
     Dates: end: 20070904
  6. CIPROXIN                           /00697201/ [Concomitant]
     Route: 048
     Dates: start: 20070902, end: 20070904

REACTIONS (3)
  - BLOOD CREATINE PHOSPHOKINASE INCREASED [None]
  - HYPERSENSITIVITY [None]
  - RASH PRURITIC [None]
